FAERS Safety Report 6704751-5 (Version None)
Quarter: 2010Q2

REPORT INFORMATION
  Report Type: 
  Country: None (occurrence: None)
  Receive Date: 20100430
  Receipt Date: 20090828
  Transmission Date: 20101027
  Serious: No
  Sender: FDA-Public Use
  Company Number: US-BAUSCH-2009BL004114

PATIENT
  Age: 57 Year
  Sex: Female

DRUGS (8)
  1. ALREX [Suspect]
     Indication: EYE INFLAMMATION
     Route: 047
     Dates: start: 20090601, end: 20090821
  2. ALREX [Suspect]
     Indication: HYPERSENSITIVITY
     Route: 047
     Dates: start: 20090601, end: 20090821
  3. ALREX [Suspect]
     Route: 047
     Dates: start: 20090822
  4. ALREX [Suspect]
     Route: 047
     Dates: start: 20090822
  5. ALREX [Suspect]
     Route: 047
     Dates: start: 20090501, end: 20090501
  6. ALREX [Suspect]
     Route: 047
     Dates: start: 20090501, end: 20090501
  7. CALCIUM [Concomitant]
     Indication: MINERAL SUPPLEMENTATION
     Route: 048
  8. VITAMIN D [Concomitant]
     Indication: VITAMIN SUPPLEMENTATION
     Route: 048

REACTIONS (3)
  - EYE IRRITATION [None]
  - EYE PAIN [None]
  - INTRAOCULAR PRESSURE INCREASED [None]
